FAERS Safety Report 20171175 (Version 1)
Quarter: 2021Q4

REPORT INFORMATION
  Report Type: Other
  Country: US (occurrence: None)
  Receive Date: 20211210
  Receipt Date: 20211210
  Transmission Date: 20220303
  Serious: No
  Sender: FDA-Public Use
  Company Number: US-ROCHE-2974390

PATIENT
  Sex: Female

DRUGS (1)
  1. OCREVUS [Suspect]
     Active Substance: OCRELIZUMAB
     Indication: Primary progressive multiple sclerosis
     Dosage: SUBSEQUENT DOSE: 600 MG ONCE EVERY SIX MONTHS.?NEXT INFUSION DATES: 01/MAY/2019, 01/NOV/2019, 16/OCT
     Route: 065
     Dates: start: 20190417

REACTIONS (1)
  - COVID-19 [Unknown]
